FAERS Safety Report 13543658 (Version 4)
Quarter: 2017Q3

REPORT INFORMATION
  Report Type: Report from Study
  Country: CA (occurrence: CA)
  Receive Date: 20170515
  Receipt Date: 20170705
  Transmission Date: 20171127
  Serious: Yes (Death, Other)
  Sender: FDA-Public Use
  Company Number: CA-ROCHE-1609477

PATIENT
  Age: 76 Year
  Sex: Male
  Weight: 69.5 kg

DRUGS (21)
  1. ESBRIET [Suspect]
     Active Substance: PIRFENIDONE
     Indication: IDIOPATHIC PULMONARY FIBROSIS
     Route: 048
     Dates: start: 20150629
  2. ULTIBRO BREEZHALER [Concomitant]
     Active Substance: GLYCOPYRRONIUM\INDACATEROL
  3. TAMSULOSIN [Concomitant]
     Active Substance: TAMSULOSIN
  4. DOCUSATE SODIUM. [Concomitant]
     Active Substance: DOCUSATE SODIUM
  5. BRILINTA [Concomitant]
     Active Substance: TICAGRELOR
  6. SYNTHROID [Concomitant]
     Active Substance: LEVOTHYROXINE SODIUM
  7. DULCOLAX (BISACODYL) [Concomitant]
     Active Substance: BISACODYL
  8. RAMIPRIL. [Concomitant]
     Active Substance: RAMIPRIL
  9. ACETYLSALICYLIC ACID [Concomitant]
     Active Substance: ASPIRIN
     Route: 065
  10. ESBRIET [Suspect]
     Active Substance: PIRFENIDONE
     Route: 048
     Dates: start: 20150706
  11. PREDNISONE. [Concomitant]
     Active Substance: PREDNISONE
  12. OMEPRAZOLE. [Concomitant]
     Active Substance: OMEPRAZOLE
  13. TECTA [Concomitant]
     Active Substance: PANTOPRAZOLE MAGNESIUM
  14. BREO ELLIPTA [Concomitant]
     Active Substance: FLUTICASONE FUROATE\VILANTEROL TRIFENATATE
  15. ATORVASTATIN [Concomitant]
     Active Substance: ATORVASTATIN
  16. PEG 17 FLAKES [Concomitant]
  17. ESBRIET [Suspect]
     Active Substance: PIRFENIDONE
     Dosage: STOPPED IN //2017
     Route: 048
     Dates: start: 20150713
  18. SPIRIVA [Concomitant]
     Active Substance: TIOTROPIUM BROMIDE MONOHYDRATE
  19. BISOPROLOL [Concomitant]
     Active Substance: BISOPROLOL
  20. SENOKOT [Concomitant]
     Active Substance: SENNOSIDES
  21. AIROMIR [Concomitant]
     Active Substance: ALBUTEROL SULFATE

REACTIONS (20)
  - Skin cancer [Unknown]
  - Decreased appetite [Recovered/Resolved]
  - Hypotension [Unknown]
  - Pulmonary function test decreased [Unknown]
  - Forced vital capacity decreased [Unknown]
  - Oxygen saturation decreased [Unknown]
  - Drug ineffective [Unknown]
  - Nasal dryness [Not Recovered/Not Resolved]
  - Diarrhoea [Not Recovered/Not Resolved]
  - Rash [Unknown]
  - Dyspnoea exertional [Unknown]
  - Death [Fatal]
  - Hepatic enzyme abnormal [Unknown]
  - Joint swelling [Not Recovered/Not Resolved]
  - Asthenia [Unknown]
  - Cough [Unknown]
  - Constipation [Not Recovered/Not Resolved]
  - Peripheral swelling [Unknown]
  - Malaise [Not Recovered/Not Resolved]
  - Hyperaesthesia [Not Recovered/Not Resolved]

NARRATIVE: CASE EVENT DATE: 201507
